FAERS Safety Report 24219935 (Version 2)
Quarter: 2025Q1

REPORT INFORMATION
  Report Type: Spontaneous
  Country: US (occurrence: US)
  Receive Date: 20240817
  Receipt Date: 20250312
  Transmission Date: 20250409
  Serious: No
  Sender: SANOFI AVENTIS
  Company Number: US-SA-SAC20240813000577

PATIENT
  Sex: Male

DRUGS (1)
  1. DUPILUMAB [Suspect]
     Active Substance: DUPILUMAB
     Indication: Dermatitis atopic
     Dosage: 300 MG, QOW
     Route: 058

REACTIONS (7)
  - Vomiting [Unknown]
  - Dry eye [Unknown]
  - Eye pruritus [Unknown]
  - Rash pruritic [Unknown]
  - Dry skin [Unknown]
  - Dehydration [Unknown]
  - Product dose omission in error [Unknown]
